FAERS Safety Report 6146840-2 (Version None)
Quarter: 2009Q2

REPORT INFORMATION
  Report Type: 
  Country: None (occurrence: None)
  Receive Date: 20090407
  Receipt Date: 20090327
  Transmission Date: 20091009
  Serious: Yes (Hospitalization)
  Sender: FDA-Public Use
  Company Number: GR-AVENTIS-200913293GDDC

PATIENT
  Age: 65 Year
  Sex: Male

DRUGS (8)
  1. RIFAMPICIN [Suspect]
  2. ISONIAZID [Concomitant]
  3. ETHAMBUTOL HCL [Concomitant]
  4. TICE BCG [Concomitant]
     Route: 051
  5. CEFOROXIME [Concomitant]
  6. PREDNISOLONE [Concomitant]
  7. LEVOFLOXACIN [Concomitant]
  8. CORTICOSTEROIDS [Concomitant]

REACTIONS (2)
  - HEPATIC ENZYME INCREASED [None]
  - PANCYTOPENIA [None]
